APPROVED DRUG PRODUCT: MEGESTROL ACETATE
Active Ingredient: MEGESTROL ACETATE
Strength: 20MG
Dosage Form/Route: TABLET;ORAL
Application: A074458 | Product #001
Applicant: HIKMA PHARMACEUTICALS USA INC
Approved: Sep 29, 1995 | RLD: No | RS: No | Type: DISCN